FAERS Safety Report 5199340-0 (Version None)
Quarter: 2006Q4

REPORT INFORMATION
  Report Type: 
  Country: None (occurrence: None)
  Receive Date: 20061229
  Receipt Date: 20061213
  Transmission Date: 20070319
  Serious: Yes (Hospitalization, Other)
  Sender: FDA-Public Use
  Company Number: JPI-P-000207

PATIENT
  Sex: Female

DRUGS (1)
  1. XYREM [Suspect]
     Dosage: ORAL
     Route: 048

REACTIONS (1)
  - PSYCHOTIC DISORDER [None]
